FAERS Safety Report 11746600 (Version 1)
Quarter: 2015Q4

REPORT INFORMATION
  Report Type: Spontaneous
  Country: US (occurrence: None)
  Receive Date: 20151116
  Receipt Date: 20151116
  Transmission Date: 20160304
  Serious: No
  Sender: FDA-Public Use
  Company Number: None

PATIENT
  Age: 74 Year
  Sex: Male
  Weight: 89.81 kg

DRUGS (4)
  1. DONEPEZIL. [Concomitant]
     Active Substance: DONEPEZIL
  2. SAW PALMETTO [Concomitant]
     Active Substance: SAW PALMETTO
  3. SILDENAFIL 20MG [Suspect]
     Active Substance: SILDENAFIL
     Indication: ERECTILE DYSFUNCTION
     Dosage: 2-5 PILLS, AS NEEDED, TAKEN BY MOUTH
     Route: 048
     Dates: start: 20150901, end: 20151114
  4. LOSARTAN. [Concomitant]
     Active Substance: LOSARTAN

REACTIONS (1)
  - Deafness [None]

NARRATIVE: CASE EVENT DATE: 20151001
